FAERS Safety Report 5138459-7 (Version None)
Quarter: 2006Q4

REPORT INFORMATION
  Report Type: 
  Country: None (occurrence: None)
  Receive Date: 20061030
  Receipt Date: 20060228
  Transmission Date: 20070319
  Serious: No
  Sender: FDA-Public Use
  Company Number: US-GLAXOSMITHKLINE-A0595541A

PATIENT
  Sex: Female

DRUGS (4)
  1. ADVAIR HFA [Suspect]
     Indication: RESPIRATORY TRACT CONGESTION
     Dosage: 1PUFF TWICE PER DAY
     Route: 055
     Dates: start: 20060204
  2. FLONASE [Concomitant]
  3. PREDNISONE TAB [Concomitant]
  4. KLONOPIN [Concomitant]

REACTIONS (2)
  - COUGH [None]
  - DRUG INEFFECTIVE [None]
